FAERS Safety Report 17957017 (Version 2)
Quarter: 2020Q4

REPORT INFORMATION
  Report Type: Spontaneous
  Country: AR (occurrence: AR)
  Receive Date: 20200629
  Receipt Date: 20201006
  Transmission Date: 20210113
  Serious: Yes (Other)
  Sender: FDA-Public Use
  Company Number: AR-PFIZER INC-2020248008

PATIENT
  Age: 77 Year
  Sex: Female

DRUGS (3)
  1. LETROZOL [Concomitant]
     Active Substance: LETROZOLE
  2. FULVESTRANT. [Concomitant]
     Active Substance: FULVESTRANT
  3. IBRANCE [Suspect]
     Active Substance: PALBOCICLIB
     Indication: BREAST CANCER METASTATIC
     Dosage: 125 MG, CYCLIC(3X1 SCHEME)
     Dates: start: 20191107

REACTIONS (7)
  - Diabetes mellitus [Unknown]
  - Hypertension [Unknown]
  - Blindness [Unknown]
  - Neoplasm progression [Unknown]
  - Memory impairment [Unknown]
  - Eyelid thickening [Unknown]
  - Diabetic retinopathy [Unknown]

NARRATIVE: CASE EVENT DATE: 20200625
